FAERS Safety Report 8058019-8 (Version None)
Quarter: 2012Q1

REPORT INFORMATION
  Report Type: 
  Country: None (occurrence: None)
  Receive Date: 20120120
  Receipt Date: 20120111
  Transmission Date: 20120608
  Serious: Yes (Hospitalization)
  Sender: FDA-Public Use
  Company Number: VE-PAR PHARMACEUTICAL, INC-2011SCPR003470

PATIENT

DRUGS (6)
  1. CEFADROXIL [Suspect]
     Indication: ASTHENIA
     Dosage: UNK, UNKNOWN
     Route: 065
  2. IBUPROFEN [Suspect]
     Indication: DYSPHAGIA
  3. CEFADROXIL [Suspect]
     Indication: DYSPHAGIA
  4. IBUPROFEN [Suspect]
     Indication: ASTHENIA
     Dosage: UNK, UNKNOWN
     Route: 065
  5. IBUPROFEN [Suspect]
     Indication: ODYNOPHAGIA
  6. CEFADROXIL [Suspect]
     Indication: ODYNOPHAGIA

REACTIONS (1)
  - TOXIC EPIDERMAL NECROLYSIS [None]
